FAERS Safety Report 5534589-6 (Version None)
Quarter: 2007Q4

REPORT INFORMATION
  Report Type: 
  Country: None (occurrence: None)
  Receive Date: 20071204
  Receipt Date: 20071204
  Transmission Date: 20080405
  Serious: Yes (Hospitalization)
  Sender: FDA-Public Use
  Company Number: None

PATIENT
  Sex: Male
  Weight: 91.4 kg

DRUGS (13)
  1. ACTOS [Suspect]
     Indication: DIABETES MELLITUS
     Dosage: PO
     Route: 048
  2. GLIPIZIDE [Suspect]
     Indication: DIABETES MELLITUS
     Dosage: PO
     Route: 048
  3. LEVAQUIN [Concomitant]
  4. ASPIRIN [Concomitant]
  5. ATORVASTATIN [Concomitant]
  6. PEPCID [Concomitant]
  7. PREVACID [Concomitant]
  8. LOPRESSOR [Concomitant]
  9. LUMIGAN [Concomitant]
  10. MEGACE [Concomitant]
  11. TRAMADOL HCL [Concomitant]
  12. ACTOS [Concomitant]
  13. GLIPIZIDE [Concomitant]

REACTIONS (1)
  - BLOOD GLUCOSE DECREASED [None]
